FAERS Safety Report 23176957 (Version 1)
Quarter: 2023Q4

REPORT INFORMATION
  Report Type: Spontaneous
  Country: US (occurrence: None)
  Receive Date: 20231111
  Receipt Date: 20231111
  Transmission Date: 20240109
  Serious: No
  Sender: FDA-Public Use
  Company Number: None

PATIENT
  Age: 11 Year
  Sex: Female
  Weight: 53.1 kg

DRUGS (2)
  1. CIPROFLOXACIN HYDROCHLORIDE\DEXAMETHASONE [Suspect]
     Active Substance: CIPROFLOXACIN HYDROCHLORIDE\DEXAMETHASONE
     Indication: Conjunctivitis
     Dosage: FREQUENCY : TWICE A DAY;?
     Route: 047
     Dates: start: 20231109, end: 20231110
  2. Ciprofloxacin-dexAMETHasone Suspension [Concomitant]
     Dates: start: 20231109, end: 20231110

REACTIONS (2)
  - Product prescribing issue [None]
  - Off label use [None]

NARRATIVE: CASE EVENT DATE: 20231109
